FAERS Safety Report 8382715 (Version 2)
Quarter: 2019Q4

REPORT INFORMATION
  Report Type: Spontaneous
  Country: CY (occurrence: CY)
  Receive Date: 20120201
  Receipt Date: 20191218
  Transmission Date: 20200122
  Serious: Yes (Hospitalization)
  Sender: FDA-Public Use
  Company Number: PHHY2012CY006239

PATIENT
  Age: 75 Year
  Sex: Female

DRUGS (4)
  1. AMLODIPINE [Concomitant]
     Active Substance: AMLODIPINE BESYLATE
     Indication: HYPERTENSION
     Dosage: 10 MG, QD
     Route: 065
  2. RIVASTIGMINE. [Suspect]
     Active Substance: RIVASTIGMINE
     Indication: DEMENTIA ALZHEIMER^S TYPE
     Dosage: 9.5 MG, Q24H
     Route: 062
  3. LISINOPRIL. [Concomitant]
     Active Substance: LISINOPRIL
     Indication: HYPERTENSION
     Dosage: 20 MG, QD
     Route: 065
  4. METOPROLOL. [Concomitant]
     Active Substance: METOPROLOL
     Indication: HYPERTENSION
     Dosage: 25 MG, QD
     Route: 065

REACTIONS (9)
  - Rash papular [Recovered/Resolved]
  - Skin abrasion [Recovered/Resolved]
  - Blood immunoglobulin E increased [Recovered/Resolved]
  - Skin plaque [Recovered/Resolved]
  - Application site erythema [Recovered/Resolved]
  - Application site reaction [Recovered/Resolved]
  - Hypersensitivity vasculitis [Recovered/Resolved]
  - Pruritus [Recovered/Resolved]
  - Eczema [Recovered/Resolved]
